FAERS Safety Report 4828140-3 (Version None)
Quarter: 2005Q4

REPORT INFORMATION
  Report Type: 
  Country: None (occurrence: None)
  Receive Date: 20051110
  Receipt Date: 20051027
  Transmission Date: 20060501
  Serious: Yes (Hospitalization)
  Sender: FDA-Public Use
  Company Number: CERZ-11047

PATIENT
  Age: 54 Year
  Sex: Male
  Weight: 94.8018 kg

DRUGS (1)
  1. CEREZYME [Suspect]
     Indication: GAUCHER'S DISEASE
     Dosage: 5600 UNITS Q2WKS IV
     Route: 042
     Dates: start: 20040408

REACTIONS (1)
  - ESCHERICHIA INFECTION [None]
